FAERS Safety Report 4337691-X (Version None)
Quarter: 2004Q2

REPORT INFORMATION
  Report Type: 
  Country: None (occurrence: None)
  Receive Date: 20040413
  Receipt Date: 20040402
  Transmission Date: 20050107
  Serious: Yes (Other)
  Sender: FDA-Public Use
  Company Number: ES-MERCK-0404ESP00007

PATIENT

DRUGS (2)
  1. [THERAPY UNSPECIFIED] [Concomitant]
     Indication: BARRETT'S OESOPHAGUS
     Route: 065
  2. VIOXX [Suspect]
     Indication: BARRETT'S OESOPHAGUS
     Route: 065

REACTIONS (2)
  - CEREBRAL HAEMORRHAGE [None]
  - CEREBROVASCULAR ACCIDENT [None]
